FAERS Safety Report 7251587-5 (Version None)
Quarter: 2011Q1

REPORT INFORMATION
  Report Type: 
  Country: None (occurrence: None)
  Receive Date: 20110128
  Receipt Date: 20110117
  Transmission Date: 20110831
  Serious: Yes (Hospitalization, Other)
  Sender: FDA-Public Use
  Company Number: NL-ELI_LILLY_AND_COMPANY-NL201011004073

PATIENT
  Sex: Female
  Weight: 80 kg

DRUGS (28)
  1. LACTULOSE [Concomitant]
     Indication: CONSTIPATION
     Dosage: 670 MG, UNK
  2. CODEINE PHOSPHATE AND ACETAMINOPHEN [Concomitant]
     Indication: PAIN
  3. TIOTROPIUM [Concomitant]
     Dosage: 2.5 UG, UNK
  4. FORTEO [Suspect]
     Indication: OSTEOPOROSIS
     Dosage: 20 UG, DAILY (1/D)
     Route: 058
     Dates: start: 20101006, end: 20101027
  5. ISOSORBID MONONITRATE [Concomitant]
     Indication: CARDIAC DISORDER
     Dosage: 30 MG, UNK
  6. MICONAZOLE [Concomitant]
     Indication: FUNGAL INFECTION
     Dosage: UNK, UNK
     Route: 048
  7. PREDNISONE [Concomitant]
     Dosage: 5 MG, UNK
  8. FUROSEMIDE [Concomitant]
     Indication: FLUID RETENTION
     Dosage: 40 MG, UNK
  9. NYSTATINE [Concomitant]
     Indication: LOCALISED INFECTION
     Route: 048
  10. BECLOMETHASONE W/FENOTEROL [Concomitant]
  11. IBUPROFEN [Concomitant]
     Indication: PAIN
     Dosage: 600 MG, UNK
  12. IVABRADINE [Concomitant]
     Indication: CARDIAC DISORDER
     Dosage: 5 MG, UNK
  13. SALBUTAMOL SULFATE W/IPRATROPIUM [Concomitant]
  14. BUDESONIDE W/FORMOTEROL FUMARATE [Concomitant]
     Route: 055
  15. NITROGLYCERIN [Concomitant]
     Indication: CARDIAC DISORDER
     Dosage: 0.4 MG, UNK
     Route: 060
  16. SPIRONOLACTONE [Concomitant]
     Dosage: 25 MG, UNK
  17. CLOPIDOGREL [Concomitant]
     Dosage: 75 MG, UNK
  18. EMEDASTINE [Concomitant]
  19. NOSCAPINE [Concomitant]
     Indication: NASOPHARYNGITIS
  20. PREGABALIN [Concomitant]
     Indication: PAIN
     Dosage: 75 MG, UNK
  21. ALBUTEROL [Concomitant]
     Route: 055
  22. SALMETEROL/FLUTICASONPROPIONAAT [Concomitant]
  23. BUPRENORPHINE [Concomitant]
     Indication: PAIN
     Dosage: 10 UG, EVERY HOUR
  24. CALCIUM CARBONATE W/COLECALCIFEROL [Concomitant]
     Indication: OSTEOPOROSIS
     Dosage: UNK UNK, DAILY (1/D)
     Route: 048
  25. DOMPERIDON                         /00498201/ [Concomitant]
     Indication: NAUSEA
     Dosage: 60 MG, UNK
  26. OMEPRAZOLE [Concomitant]
     Indication: ABDOMINAL DISCOMFORT
     Dosage: 40 MG, UNK
  27. ALBUTEROL [Concomitant]
     Route: 055
  28. TEMAZEPAM [Concomitant]
     Indication: INSOMNIA
     Dosage: 10 MG, UNK

REACTIONS (5)
  - CARDIAC FAILURE [None]
  - DYSPNOEA [None]
  - BACK PAIN [None]
  - LUNG DISORDER [None]
  - NEURALGIA [None]
